FAERS Safety Report 8366467-1 (Version None)
Quarter: 2012Q2

REPORT INFORMATION
  Report Type: 
  Country: None (occurrence: None)
  Receive Date: 20120517
  Receipt Date: 20120505
  Transmission Date: 20120825
  Serious: No
  Sender: FDA-Public Use
  Company Number: US-BAYER-2012-048119

PATIENT
  Age: 11 Month
  Sex: Male
  Weight: 8 kg

DRUGS (2)
  1. BENADRYL [Concomitant]
  2. NAPROXEN SODIUM [Suspect]
     Dosage: 1 DF, ONCE
     Route: 048
     Dates: start: 20120505

REACTIONS (1)
  - NO ADVERSE EVENT [None]
